FAERS Safety Report 19223629 (Version 3)
Quarter: 2022Q1

REPORT INFORMATION
  Report Type: Spontaneous
  Country: US (occurrence: US)
  Receive Date: 20210505
  Receipt Date: 20220222
  Transmission Date: 20220423
  Serious: Yes (Other)
  Sender: FDA-Public Use
  Company Number: US-UCBSA-2021020355

PATIENT
  Age: 57 Year
  Sex: Male

DRUGS (7)
  1. LEVETIRACETAM [Suspect]
     Active Substance: LEVETIRACETAM
     Indication: Seizure prophylaxis
     Dosage: 500 MILLIGRAM, 2X/DAY (BID)
  2. LEVETIRACETAM [Suspect]
     Active Substance: LEVETIRACETAM
     Dosage: 750 MILLIGRAM, 2X/DAY (BID)
  3. DEXAMETHASONE [Concomitant]
     Active Substance: DEXAMETHASONE
     Indication: Seizure prophylaxis
     Dosage: 4 MILLIGRAM, 2X/DAY (BID)
  4. APIXABAN [Concomitant]
     Active Substance: APIXABAN
     Indication: Stenosis
     Dosage: UNK
  5. CARBOPLATIN\PACLITAXEL [Concomitant]
     Active Substance: CARBOPLATIN\PACLITAXEL
     Indication: Neoplasm
     Dosage: UNK
  6. HEPARIN [Concomitant]
     Active Substance: HEPARIN SODIUM
     Indication: Thrombosis
     Dosage: REDUCED-DOSE
     Route: 042
  7. PROTAMINE [Concomitant]
     Active Substance: PROTAMINE
     Indication: Cerebellar haemorrhage
     Dosage: UNK

REACTIONS (2)
  - Pancytopenia [Recovering/Resolving]
  - Product use issue [Unknown]
